FAERS Safety Report 10696367 (Version 1)
Quarter: 2015Q1

REPORT INFORMATION
  Report Type: Spontaneous
  Country: US (occurrence: US)
  Receive Date: 20150107
  Receipt Date: 20150107
  Transmission Date: 20150721
  Serious: No
  Sender: FDA-Public Use
  Company Number: US-ELI_LILLY_AND_COMPANY-US201412005014

PATIENT
  Age: 70 Year
  Sex: Male

DRUGS (3)
  1. CIALIS [Suspect]
     Active Substance: TADALAFIL
     Indication: ERECTILE DYSFUNCTION
     Dosage: 5 MG, QD
     Route: 065
     Dates: start: 20140611
  2. CIALIS [Suspect]
     Active Substance: TADALAFIL
     Dosage: 5 MG, QOD
     Route: 065
  3. LOSARTAN [Concomitant]
     Active Substance: LOSARTAN
     Indication: HYPERTENSION
     Dosage: 50 DF, UNK

REACTIONS (3)
  - Prostatic specific antigen increased [Unknown]
  - Inappropriate schedule of drug administration [Not Recovered/Not Resolved]
  - Headache [Recovered/Resolved]
